FAERS Safety Report 6417623-0 (Version None)
Quarter: 2009Q4

REPORT INFORMATION
  Report Type: 
  Country: None (occurrence: None)
  Receive Date: 20091028
  Receipt Date: 20090504
  Transmission Date: 20100525
  Serious: Yes (Other)
  Sender: FDA-Public Use
  Company Number: US-BAYER-200920301NA

PATIENT
  Age: 53 Year
  Sex: Female
  Weight: 105 kg

DRUGS (29)
  1. MAGNEVIST [Suspect]
     Indication: NUCLEAR MAGNETIC RESONANCE IMAGING ABDOMINAL
     Route: 042
     Dates: start: 20060721, end: 20060721
  2. MAGNEVIST [Suspect]
     Route: 042
     Dates: start: 20061009, end: 20061009
  3. MAGNEVIST [Suspect]
     Route: 042
     Dates: start: 20061109, end: 20061109
  4. MAGNEVIST [Suspect]
     Route: 042
     Dates: start: 20061227, end: 20061227
  5. MAGNEVIST [Suspect]
     Dates: start: 20030929, end: 20030929
  6. MAGNEVIST [Suspect]
     Dates: start: 20040902, end: 20040902
  7. OMNISCAN [Suspect]
     Indication: ANGIOGRAM
     Dosage: TOTAL DAILY DOSE: 20 ML
     Route: 042
     Dates: start: 20061104, end: 20061104
  8. OMNISCAN [Suspect]
     Dosage: TOTAL DAILY DOSE: 20 ML
     Route: 042
     Dates: start: 20061022, end: 20061022
  9. OMNISCAN [Suspect]
     Dosage: TOTAL DAILY DOSE: 20 ML
     Route: 042
     Dates: start: 20061026, end: 20061026
  10. INSULIN [Concomitant]
  11. COUMADIN [Concomitant]
  12. PEN-VEE K [Concomitant]
  13. BACTRIM [Concomitant]
  14. LIPITOR [Concomitant]
  15. PHOSLO [Concomitant]
  16. PROGRAF [Concomitant]
  17. PROTONIX [Concomitant]
  18. SYNTHROID [Concomitant]
  19. NORVASC [Concomitant]
  20. VFEND [Concomitant]
  21. MAGNESIUM [Concomitant]
  22. MIDODRINE HYDROCHLORIDE [Concomitant]
  23. PREDNISONE [Concomitant]
     Indication: GRAFT VERSUS HOST DISEASE
  24. CELLCEPT [Concomitant]
  25. EPOGEN [Concomitant]
     Dosage: 10,000 UNITS PER DIALYSIS ORDERS
     Dates: start: 20061028
  26. CINACALCET [Concomitant]
  27. CALCIUM ACETATE [Concomitant]
  28. RENAGEL [Concomitant]
  29. ZEMPLAR [Concomitant]

REACTIONS (13)
  - ARTHRALGIA [None]
  - DERMATITIS [None]
  - JOINT CONTRACTURE [None]
  - JOINT STIFFNESS [None]
  - JOINT SWELLING [None]
  - MUSCULAR WEAKNESS [None]
  - NEPHROGENIC SYSTEMIC FIBROSIS [None]
  - OEDEMA [None]
  - SCLERODERMA [None]
  - SKIN HYPERPIGMENTATION [None]
  - SKIN HYPERTROPHY [None]
  - SKIN INDURATION [None]
  - SKIN TIGHTNESS [None]
